FAERS Safety Report 17235485 (Version 1)
Quarter: 2020Q1

REPORT INFORMATION
  Report Type: Spontaneous
  Country: FR (occurrence: FR)
  Receive Date: 20200106
  Receipt Date: 20200106
  Transmission Date: 20200409
  Serious: Yes (Hospitalization)
  Sender: FDA-Public Use
  Company Number: FR-TEVA-2019-FR-1161788

PATIENT
  Age: 55 Year
  Sex: Male
  Weight: 64 kg

DRUGS (2)
  1. CARBOPLATINE [Suspect]
     Active Substance: CARBOPLATIN
     Indication: LUNG ADENOCARCINOMA
     Dosage: 820 MG PER 3 WEEKS
     Route: 042
     Dates: start: 20190904, end: 20191115
  2. PEMETREXED. [Suspect]
     Active Substance: PEMETREXED
     Indication: LUNG ADENOCARCINOMA
     Dosage: 875 MG PER 3 WEEKS
     Route: 042
     Dates: start: 20190904, end: 20191115

REACTIONS (1)
  - Pancytopenia [Recovering/Resolving]

NARRATIVE: CASE EVENT DATE: 20191128
